FAERS Safety Report 6940084-X (Version None)
Quarter: 2010Q3

REPORT INFORMATION
  Report Type: 
  Country: None (occurrence: None)
  Receive Date: 20100825
  Receipt Date: 20100812
  Transmission Date: 20110219
  Serious: No
  Sender: FDA-Public Use
  Company Number: SG-US-EMD SERONO, INC.-7013412

PATIENT

DRUGS (1)
  1. SAIZEN [Suspect]
     Indication: INFERTILITY

REACTIONS (2)
  - DIABETES MELLITUS [None]
  - OFF LABEL USE [None]
